FAERS Safety Report 5029247-0 (Version None)
Quarter: 2006Q2

REPORT INFORMATION
  Report Type: 
  Country: None (occurrence: None)
  Receive Date: 20060616
  Receipt Date: 20060616
  Transmission Date: 20061013
  Serious: Yes (Life-Threatening, Hospitalization, Disabling)
  Sender: FDA-Public Use
  Company Number: None

PATIENT
  Age: 53 Year
  Sex: Male
  Weight: 68 kg

DRUGS (15)
  1. LISINOPRIL [Suspect]
     Indication: HYPERTENSION
     Dosage: 10MG QD PO
     Route: 048
     Dates: start: 20030124, end: 20060603
  2. COCAINE  STREET DRUG [Suspect]
     Dates: start: 20030603, end: 20060603
  3. ACETAMINOPHEN [Concomitant]
  4. ACETAMINOPHEN [Concomitant]
  5. ASPIRIN [Concomitant]
  6. BUSPIRONE HCL [Concomitant]
  7. COAL TAR 1% SHAMPOO [Concomitant]
  8. CYCLOBENZAPRINE HCL [Concomitant]
  9. LORATADINE [Concomitant]
  10. MULTIVITAMIN/MINERALS THERAPEUT CAP/TAB [Concomitant]
  11. PSEUDOEPHEDRINE HCL [Concomitant]
  12. RANITIDINE [Concomitant]
  13. TERAZOSIN HCL [Concomitant]
  14. TERAZOSIN HCL [Concomitant]
  15. VARDENAFIL HCL [Concomitant]

REACTIONS (2)
  - ANGIONEUROTIC OEDEMA [None]
  - DRUG ABUSER [None]
